FAERS Safety Report 20435499 (Version 3)
Quarter: 2022Q2

REPORT INFORMATION
  Report Type: Spontaneous
  Country: DE (occurrence: DE)
  Receive Date: 20220206
  Receipt Date: 20220624
  Transmission Date: 20220721
  Serious: Yes (Other)
  Sender: FDA-Public Use
  Company Number: DE-JNJFOC-20220119832

PATIENT
  Sex: Female

DRUGS (4)
  1. ENBREL [Suspect]
     Active Substance: ETANERCEPT
     Indication: Psoriasis
     Dosage: UNK
     Route: 065
  2. TREMFYA [Suspect]
     Active Substance: GUSELKUMAB
     Indication: Psoriasis
     Dosage: 100 MILLIGRAM
     Route: 065
  3. CORTISONE [Suspect]
     Active Substance: CORTISONE
     Indication: Psoriasis
     Dosage: UNK
     Route: 065
  4. STELARA [Suspect]
     Active Substance: USTEKINUMAB
     Indication: Psoriasis
     Dosage: UNK
     Route: 058

REACTIONS (5)
  - Therapeutic product effect decreased [Unknown]
  - Swelling face [Unknown]
  - Hip surgery [Unknown]
  - Psoriasis [Not Recovered/Not Resolved]
  - Infection [Unknown]
